FAERS Safety Report 16441957 (Version 1)
Quarter: 2019Q2

REPORT INFORMATION
  Report Type: Report from Study
  Country: None (occurrence: US)
  Receive Date: 20190617
  Receipt Date: 20190617
  Transmission Date: 20190711
  Serious: No
  Sender: FDA-Public Use
  Company Number: US-US WORLDMEDS, LLC-USW201810-001552

PATIENT
  Age: 66 Year
  Sex: Female
  Weight: 81.64 kg

DRUGS (6)
  1. WELLBUTRIN [Concomitant]
     Active Substance: BUPROPION HYDROCHLORIDE
  2. CARBIDOPA/LEVODOPA [Concomitant]
     Active Substance: CARBIDOPA\LEVODOPA
  3. APOKYN [Suspect]
     Active Substance: APOMORPHINE HYDROCHLORIDE
     Indication: PARKINSON^S DISEASE
     Route: 058
     Dates: start: 20180911
  4. XADAGO [Concomitant]
     Active Substance: SAFINAMIDE MESYLATE
  5. ENTACAPONE. [Concomitant]
     Active Substance: ENTACAPONE
  6. APOKYN [Suspect]
     Active Substance: APOMORPHINE HYDROCHLORIDE
     Route: 058

REACTIONS (2)
  - Nausea [Unknown]
  - Hot flush [Unknown]

NARRATIVE: CASE EVENT DATE: 20180912
